FAERS Safety Report 9638211 (Version 1)
Quarter: 2013Q4

REPORT INFORMATION
  Report Type: Spontaneous
  Country: US (occurrence: US)
  Receive Date: 20131022
  Receipt Date: 20131022
  Transmission Date: 20140711
  Serious: No
  Sender: FDA-Public Use
  Company Number: US-PFIZER INC-2013298039

PATIENT
  Sex: Male

DRUGS (5)
  1. XANAX [Suspect]
     Indication: ANXIETY
     Dosage: 0.25 MG, AS NEEDED
     Dates: start: 201309, end: 201309
  2. XANAX [Suspect]
     Dosage: 0.5 MG, AS NEEDED
     Dates: start: 201309, end: 201310
  3. XANAX [Suspect]
     Dosage: 1 MG, AS NEEDED
     Dates: start: 201310
  4. EFFEXOR-XR [Concomitant]
     Indication: DEPRESSION
     Dosage: UNK
     Dates: start: 201310
  5. VIIBRYD [Concomitant]
     Indication: DEPRESSION
     Dosage: UNK
     Dates: start: 201310, end: 20131014

REACTIONS (2)
  - Drug ineffective [Unknown]
  - Loss of libido [Unknown]
